FAERS Safety Report 12836628 (Version 1)
Quarter: 2016Q4

REPORT INFORMATION
  Report Type: Spontaneous
  Country: GB (occurrence: GB)
  Receive Date: 20161011
  Receipt Date: 20161011
  Transmission Date: 20170207
  Serious: Yes (Other)
  Sender: FDA-Public Use
  Company Number: PHHY2016GB137079

PATIENT
  Age: 35 Year
  Sex: Female
  Weight: 69.85 kg

DRUGS (1)
  1. AZITHROMYCIN ANHYDROUS. [Suspect]
     Active Substance: AZITHROMYCIN ANHYDROUS
     Indication: ABORTION COMPLETE
     Dosage: 4 TABLETS AT ONCE WITH HALF GLASS OF WATER.
     Route: 048
     Dates: start: 20160920, end: 20160920

REACTIONS (1)
  - Pain in extremity [Not Recovered/Not Resolved]

NARRATIVE: CASE EVENT DATE: 20160920
